FAERS Safety Report 5753051-9 (Version None)
Quarter: 2008Q2

REPORT INFORMATION
  Report Type: 
  Country: None (occurrence: None)
  Receive Date: 20080527
  Receipt Date: 20080508
  Transmission Date: 20081010
  Serious: Yes (Other)
  Sender: FDA-Public Use
  Company Number: 2008S1007988

PATIENT
  Age: 15 Year
  Sex: Female

DRUGS (8)
  1. OMEPRAZOLE [Suspect]
     Indication: HAEMORRHAGE
     Dosage: 20 MG;DAILY
     Dates: start: 20060601
  2. ZITHROMAX [Suspect]
     Indication: ANTIBIOTIC PROPHYLAXIS
     Dosage: 500 MG; ORAL
     Route: 048
     Dates: start: 20040101
  3. COLISTIN SULFATE [Concomitant]
  4. CREON [Concomitant]
  5. PULMOZYME [Concomitant]
  6. SERETIDE [Concomitant]
  7. VENTOLIN [Concomitant]
  8. VITAMIN PREPARATION COMPOUND [Concomitant]

REACTIONS (2)
  - HYPOGLYCAEMIA [None]
  - TREMOR [None]
